FAERS Safety Report 9122459 (Version 1)
Quarter: 2013Q1

REPORT INFORMATION
  Report Type: Report from Study
  Country: US (occurrence: US)
  Receive Date: 20130227
  Receipt Date: 20130227
  Transmission Date: 20140127
  Serious: Yes (Hospitalization, Other)
  Sender: FDA-Public Use
  Company Number: US-BRISTOL-MYERS SQUIBB COMPANY-15361074

PATIENT
  Age: 74 Year
  Sex: Female

DRUGS (20)
  1. IPILIMUMAB [Suspect]
     Indication: MALIGNANT MELANOMA
     Route: 042
     Dates: start: 20100916, end: 20101007
  2. PRILOSEC [Concomitant]
     Dosage: AT NIGHT
  3. XANAX [Concomitant]
     Dosage: AT NIGHT
  4. ZOCOR [Concomitant]
     Dosage: AT NIGHT
  5. TOPROL [Concomitant]
  6. JANUVIA [Concomitant]
  7. CELEXA [Concomitant]
  8. LISINOPRIL [Concomitant]
  9. HYDROCHLOROTHIAZIDE [Concomitant]
  10. WARFARIN [Concomitant]
     Indication: ATRIAL FIBRILLATION
  11. VANCOMYCIN [Concomitant]
  12. CEFTAZIDIME [Concomitant]
     Dosage: Q12
     Route: 042
  13. NEUPOGEN [Concomitant]
     Dosage: Q12
  14. DIFLUCAN [Concomitant]
  15. LEVOTHYROXINE [Concomitant]
  16. TOPROL XL [Concomitant]
     Dosage: 1DF=200 (UNITS NOT SPECIFIED)
  17. MULTIVITAMINS [Concomitant]
     Dosage: 1DF=1 TABLET
  18. PROTONIX [Concomitant]
     Dosage: 1DF=40 (UNITS NOT SPECIFIED)
  19. TYLENOL [Concomitant]
  20. SYNTHROID [Concomitant]

REACTIONS (3)
  - Febrile neutropenia [Recovered/Resolved with Sequelae]
  - Neutropenia [Unknown]
  - Renal failure acute [Recovering/Resolving]
